FAERS Safety Report 6375970-5 (Version None)
Quarter: 2009Q3

REPORT INFORMATION
  Report Type: 
  Country: None (occurrence: None)
  Receive Date: 20090924
  Receipt Date: 20090915
  Transmission Date: 20100115
  Serious: Yes (Hospitalization)
  Sender: FDA-Public Use
  Company Number: JP-ASTRAZENECA-2009SE05475

PATIENT
  Age: 82 Year
  Sex: Male

DRUGS (2)
  1. CASODEX [Suspect]
     Route: 048
     Dates: start: 20090329
  2. LEUPLIN [Concomitant]
     Route: 058
     Dates: start: 20090329

REACTIONS (1)
  - CARDIAC FAILURE [None]
